FAERS Safety Report 6235259-1 (Version None)
Quarter: 2009Q2

REPORT INFORMATION
  Report Type: 
  Country: None (occurrence: None)
  Receive Date: 20090618
  Receipt Date: 20090608
  Transmission Date: 20091009
  Serious: Yes (Other)
  Sender: FDA-Public Use
  Company Number: US-JNJCH-2009015789

PATIENT
  Age: 20 Year
  Sex: Female
  Weight: 52.2 kg

DRUGS (1)
  1. BENADRYL ALLERGY KAPGELS [Suspect]
     Indication: DRUG HYPERSENSITIVITY
     Dosage: TEXT:1 KAPGEL ONCE
     Route: 048
     Dates: start: 20090606, end: 20090606

REACTIONS (4)
  - DYSPNOEA [None]
  - HYPERSENSITIVITY [None]
  - OFF LABEL USE [None]
  - SWELLING FACE [None]
